FAERS Safety Report 4919683-2 (Version None)
Quarter: 2006Q1

REPORT INFORMATION
  Report Type: 
  Country: None (occurrence: None)
  Receive Date: 20060221
  Receipt Date: 20060209
  Transmission Date: 20060701
  Serious: Yes (Other)
  Sender: FDA-Public Use
  Company Number: 2006019753

PATIENT
  Age: 75 Year
  Sex: Male

DRUGS (4)
  1. PREGABALIN (PREGABALIN) [Suspect]
     Indication: NEURALGIA
     Dosage: 150 MG, ORAL
     Route: 048
     Dates: start: 20050101, end: 20060101
  2. TRAMADOL (TRAMADOL) [Concomitant]
  3. ACETAMINOPHEN [Concomitant]
  4. TAMSULOSIN HCL [Concomitant]

REACTIONS (2)
  - ATRIAL FIBRILLATION [None]
  - DYSPNOEA [None]
